FAERS Safety Report 5596321-X (Version None)
Quarter: 2007Q4

REPORT INFORMATION
  Report Type: 
  Country: None (occurrence: None)
  Receive Date: 20071218
  Receipt Date: 20070420
  Transmission Date: 20080405
  Serious: Yes (Hospitalization, Other)
  Sender: FDA-Public Use
  Company Number: 2006127247

PATIENT
  Age: 77 Year
  Sex: Male
  Weight: 108 kg

DRUGS (7)
  1. BEXTRA [Suspect]
     Indication: ARTHRALGIA
     Dosage: 10 MG (10 MG,1 IN 1 D),ORAL
     Route: 048
     Dates: start: 20041007, end: 20050323
  2. VIOXX [Suspect]
     Dosage: ORAL
     Route: 048
     Dates: start: 20040202, end: 20040901
  3. QUININE SULFATE [Concomitant]
  4. NEXIUM [Concomitant]
  5. TRIAMTERENE AND HYDROCHLOROTHIAZIDE ^HARRIS^ (HYDROCHLORIDE, TRIAMTERE [Concomitant]
  6. HYDROCORTISONE VALERATE (HYDROCORTISONE VALERATE) [Concomitant]
  7. BENICAR [Concomitant]

REACTIONS (1)
  - MYOCARDIAL INFARCTION [None]
